FAERS Safety Report 25523917 (Version 2)
Quarter: 2025Q3

REPORT INFORMATION
  Report Type: Spontaneous
  Country: CO (occurrence: CO)
  Receive Date: 20250707
  Receipt Date: 20250825
  Transmission Date: 20251020
  Serious: No
  Sender: PFIZER
  Company Number: CO-PFIZER INC-PV202500075103

PATIENT
  Age: 11 Year
  Sex: Female

DRUGS (2)
  1. GENOTROPIN [Suspect]
     Active Substance: SOMATROPIN
     Dosage: 1.4 MG, DAILY
  2. GENOTROPIN [Suspect]
     Active Substance: SOMATROPIN
     Dosage: 2 MG, DAILY

REACTIONS (4)
  - Device mechanical issue [Unknown]
  - Device information output issue [Unknown]
  - Device leakage [Unknown]
  - Wrong technique in device usage process [Unknown]
